FAERS Safety Report 12357112 (Version 1)
Quarter: 2016Q2

REPORT INFORMATION
  Report Type: Spontaneous
  Country: US (occurrence: US)
  Receive Date: 20160511
  Receipt Date: 20160511
  Transmission Date: 20160815
  Serious: No
  Sender: FDA-Public Use
  Company Number: US-ARBOR PHARMACEUTICALS, LLC-US-2015ARB002278

PATIENT
  Age: 5 Month

DRUGS (1)
  1. E.E.S. [Suspect]
     Active Substance: ERYTHROMYCIN ETHYLSUCCINATE
     Indication: GASTROINTESTINAL MOTILITY DISORDER
     Dosage: 0.6 ML, QID
     Route: 048
     Dates: start: 20150821

REACTIONS (1)
  - Incorrect product storage [Not Recovered/Not Resolved]

NARRATIVE: CASE EVENT DATE: 20150821
